FAERS Safety Report 25074815 (Version 1)
Quarter: 2025Q1

REPORT INFORMATION
  Report Type: Spontaneous
  Country: US (occurrence: US)
  Receive Date: 20250313
  Receipt Date: 20250313
  Transmission Date: 20250408
  Serious: Yes (Hospitalization)
  Sender: ANI
  Company Number: US-ANIPHARMA-2025-US-011041

PATIENT
  Age: 68 Year
  Sex: Female
  Weight: 74.84 kg

DRUGS (1)
  1. CORTICOTROPIN [Suspect]
     Active Substance: CORTICOTROPIN
     Indication: Demyelinating polyneuropathy
     Route: 058
     Dates: start: 20241008

REACTIONS (9)
  - Myositis [Recovering/Resolving]
  - Product dose omission issue [Not Recovered/Not Resolved]
  - Condition aggravated [Recovering/Resolving]
  - Drug ineffective [Recovering/Resolving]
  - Drug ineffective for unapproved indication [Recovering/Resolving]
  - Product use in unapproved indication [Not Recovered/Not Resolved]
  - Demyelinating polyneuropathy [Recovering/Resolving]
  - Contraindicated product administered [Not Recovered/Not Resolved]
  - Necrotising myositis [Recovering/Resolving]

NARRATIVE: CASE EVENT DATE: 20241008
